FAERS Safety Report 9834429 (Version 4)
Quarter: 2014Q2

REPORT INFORMATION
  Report Type: Report from Study
  Country: US (occurrence: US)
  Receive Date: 20140122
  Receipt Date: 20140430
  Transmission Date: 20141212
  Serious: No
  Sender: FDA-Public Use
  Company Number: PHEH2014US000954

PATIENT
  Age: 59 Year
  Sex: Male
  Weight: 83.45 kg

DRUGS (5)
  1. TASIGNA [Suspect]
     Indication: GASTROINTESTINAL STROMAL TUMOUR
     Dosage: 400 MG, BID
     Route: 048
     Dates: start: 201310
  2. GLEEVEC [Suspect]
     Dosage: UNK UKN, UNK
  3. DIGOXIN [Concomitant]
     Dosage: 0.125 MG, QD
  4. PROPAFENONE [Concomitant]
     Dosage: 300 MG, BID
  5. ASPIRIN [Concomitant]

REACTIONS (7)
  - Heart rate increased [Unknown]
  - Dyspepsia [Unknown]
  - Palpitations [Recovering/Resolving]
  - Gastrooesophageal reflux disease [Recovering/Resolving]
  - Diarrhoea [Recovering/Resolving]
  - Fatigue [Unknown]
  - Myalgia [Unknown]
